FAERS Safety Report 20717051 (Version 1)
Quarter: 2022Q2

REPORT INFORMATION
  Report Type: Spontaneous
  Country: US (occurrence: US)
  Receive Date: 20220417
  Receipt Date: 20220417
  Transmission Date: 20220721
  Serious: No
  Sender: FDA-Public Use
  Company Number: US-SA-SAC20220413000634

PATIENT
  Age: 73 Year
  Sex: Female

DRUGS (3)
  1. DUPIXENT [Suspect]
     Active Substance: DUPILUMAB
     Indication: Dermatitis atopic
     Route: 058
     Dates: start: 20220210
  2. COVID-19 VACCINE NOS [Suspect]
     Active Substance: COVID-19 VACCINE NOS
     Indication: Immunisation
  3. BUPROPION [Concomitant]
     Active Substance: BUPROPION

REACTIONS (8)
  - Nodule [Unknown]
  - Condition aggravated [Unknown]
  - Eye inflammation [Unknown]
  - Skin disorder [Unknown]
  - Dry eye [Unknown]
  - Injection site pain [Unknown]
  - Dermatitis atopic [Unknown]
  - Product preparation error [Unknown]
